FAERS Safety Report 26131589 (Version 1)
Quarter: 2025Q4

REPORT INFORMATION
  Report Type: Spontaneous
  Country: US (occurrence: US)
  Receive Date: 20251208
  Receipt Date: 20251208
  Transmission Date: 20260118
  Serious: Yes (Hospitalization, Other)
  Sender: GLAXOSMITHKLINE
  Company Number: US-GSK-US2025GSK157732

PATIENT
  Age: 58 Year
  Sex: Female

DRUGS (1)
  1. DOSTARLIMAB [Suspect]
     Active Substance: DOSTARLIMAB
     Indication: Adenocarcinoma of colon
     Dosage: UNK

REACTIONS (1)
  - Organising pneumonia [Recovering/Resolving]
